FAERS Safety Report 23814114 (Version 1)
Quarter: 2024Q2

REPORT INFORMATION
  Report Type: Spontaneous
  Country: CN (occurrence: CN)
  Receive Date: 20240503
  Receipt Date: 20240503
  Transmission Date: 20240716
  Serious: Yes (Other)
  Sender: FDA-Public Use
  Company Number: CN-ABBVIE-5741781

PATIENT
  Sex: Female

DRUGS (7)
  1. CISATRACURIUM BESYLATE [Suspect]
     Active Substance: CISATRACURIUM BESYLATE
     Indication: Induction and maintenance of anaesthesia
     Dosage: 2-5  G/KG/MIN, MAINTENANCE OF ANESTHESIA
     Route: 042
  2. CISATRACURIUM BESYLATE [Suspect]
     Active Substance: CISATRACURIUM BESYLATE
     Indication: Induction and maintenance of anaesthesia
     Dosage: INDUCTION OF ANESTHESIA
     Route: 042
  3. DEXMEDETOMIDINE [Concomitant]
     Active Substance: DEXMEDETOMIDINE
     Indication: Prophylaxis
     Dosage: 0.2-0.5  G /KG/H
     Route: 042
  4. SUFENTANIL [Suspect]
     Active Substance: SUFENTANIL
     Indication: Induction of anaesthesia
     Route: 042
  5. PROPOFOL [Suspect]
     Active Substance: PROPOFOL
     Indication: Induction and maintenance of anaesthesia
     Dosage: 3-6 MG/KG/H, MAINTENANCE ANESTHESIA
     Route: 042
  6. PROPOFOL [Suspect]
     Active Substance: PROPOFOL
     Indication: Induction and maintenance of anaesthesia
     Dosage: INDUCTION ANESTHESIA
     Route: 042
  7. REMIFENTANIL [Suspect]
     Active Substance: REMIFENTANIL
     Indication: Maintenance of anaesthesia
     Dosage: 1- 0.2  G/KG/H
     Route: 042

REACTIONS (1)
  - Anaesthetic complication neurological [Unknown]
